FAERS Safety Report 15147014 (Version 2)
Quarter: 2018Q3

REPORT INFORMATION
  Report Type: Report from Study
  Country: TW (occurrence: TW)
  Receive Date: 20180716
  Receipt Date: 20180824
  Transmission Date: 20181010
  Serious: Yes (Other)
  Sender: FDA-Public Use
  Company Number: TW-BRISTOL-MYERS SQUIBB COMPANY-BMS-2018-023638

PATIENT
  Sex: Female

DRUGS (1)
  1. ABATACEPT [Suspect]
     Active Substance: ABATACEPT
     Indication: RHEUMATOID ARTHRITIS
     Dosage: 500 MG, QMO
     Route: 042
     Dates: start: 20160303

REACTIONS (4)
  - Pain in extremity [Recovered/Resolved]
  - Back pain [Recovered/Resolved]
  - Swelling [Recovered/Resolved]
  - Osteoporotic fracture [Unknown]

NARRATIVE: CASE EVENT DATE: 20180111
